FAERS Safety Report 23326819 (Version 3)
Quarter: 2024Q1

REPORT INFORMATION
  Report Type: Report from Study
  Country: CO (occurrence: CO)
  Receive Date: 20231221
  Receipt Date: 20240104
  Transmission Date: 20240409
  Serious: Yes (Other)
  Sender: FDA-Public Use
  Company Number: CO-ABBVIE-5551285

PATIENT
  Age: 52 Year
  Sex: Female
  Weight: 88 kg

DRUGS (1)
  1. SKYRIZI [Suspect]
     Active Substance: RISANKIZUMAB-RZAA
     Indication: Psoriasis
     Dosage: FORM STRENGTH: 150 MG
     Route: 058
     Dates: start: 20210901

REACTIONS (12)
  - Thrombosis [Unknown]
  - Psoriasis [Not Recovered/Not Resolved]
  - Taste disorder [Not Recovered/Not Resolved]
  - Stress [Not Recovered/Not Resolved]
  - Unevaluable event [Not Recovered/Not Resolved]
  - Crying [Not Recovered/Not Resolved]
  - Depressed mood [Not Recovered/Not Resolved]
  - Skin discolouration [Unknown]
  - Feeling hot [Not Recovered/Not Resolved]
  - Swelling [Unknown]
  - Varicose vein [Unknown]
  - Pain [Not Recovered/Not Resolved]

NARRATIVE: CASE EVENT DATE: 20231201
